FAERS Safety Report 13126363 (Version 1)
Quarter: 2017Q1

REPORT INFORMATION
  Report Type: Report from Study
  Country: CA (occurrence: CA)
  Receive Date: 20170118
  Receipt Date: 20170118
  Transmission Date: 20170428
  Serious: Yes (Death)
  Sender: FDA-Public Use
  Company Number: PHHY2016CA138308

PATIENT
  Age: 44 Year
  Sex: Female

DRUGS (3)
  1. TYKERB [Suspect]
     Active Substance: LAPATINIB DITOSYLATE
     Dosage: 250 MG
     Route: 048
  2. TYKERB [Suspect]
     Active Substance: LAPATINIB DITOSYLATE
     Indication: BREAST CANCER
     Dosage: 1000 MG
     Route: 048
     Dates: start: 20160922
  3. XELODA [Concomitant]
     Active Substance: CAPECITABINE
     Indication: PRODUCT USED FOR UNKNOWN INDICATION
     Dosage: DOSE REDUCED TO HALF
     Route: 065

REACTIONS (12)
  - Eye pruritus [Unknown]
  - Dizziness postural [Unknown]
  - Lip dry [Unknown]
  - Death [Fatal]
  - Tremor [Unknown]
  - Fatigue [Unknown]
  - Peripheral swelling [Unknown]
  - Dry skin [Unknown]
  - Vertigo [Unknown]
  - Epistaxis [Unknown]
  - Fall [Unknown]
  - Discomfort [Unknown]

NARRATIVE: CASE EVENT DATE: 20170103
